FAERS Safety Report 4587384-9 (Version None)
Quarter: 2005Q1

REPORT INFORMATION
  Report Type: 
  Country: None (occurrence: None)
  Receive Date: 20050215
  Receipt Date: 20050113
  Transmission Date: 20050727
  Serious: No
  Sender: FDA-Public Use
  Company Number: 200410608BYL

PATIENT
  Age: 72 Year
  Sex: Female
  Weight: 80 kg

DRUGS (8)
  1. ADALAT [Suspect]
     Dosage: 60 MG, TOTAL DAILY, ORAL
     Route: 048
     Dates: start: 20041019, end: 20041021
  2. RINDERON-VG [Concomitant]
  3. MILTAX [Concomitant]
  4. PRORENAL [Concomitant]
  5. AZELASTINE HCL [Concomitant]
  6. OLMETEC [Concomitant]
  7. PURSENNIDE [Concomitant]
  8. PERSANTIN [Concomitant]

REACTIONS (5)
  - ARRHYTHMIA [None]
  - DIZZINESS [None]
  - FEELING ABNORMAL [None]
  - PALPITATIONS [None]
  - TACHYCARDIA [None]
